FAERS Safety Report 9009192 (Version 8)
Quarter: 2013Q2

REPORT INFORMATION
  Report Type: Report from Study
  Country: BE (occurrence: BE)
  Receive Date: 20130111
  Receipt Date: 20130419
  Transmission Date: 20140414
  Serious: Yes (Hospitalization)
  Sender: FDA-Public Use
  Company Number: BE-ROCHE-1176245

PATIENT
  Age: 55 Year
  Sex: Female

DRUGS (28)
  1. PERTUZUMAB [Suspect]
     Indication: BREAST CANCER
     Route: 042
     Dates: start: 20121002
  2. PERTUZUMAB [Suspect]
     Dosage: DATE OF LAST DOSE PRIOR TO SAE: 24/DEC/2012
     Route: 042
  3. TRASTUZUMAB [Suspect]
     Indication: BREAST CANCER
     Route: 042
     Dates: start: 20121002
  4. TRASTUZUMAB [Suspect]
     Dosage: DATE OF LAST DOSE PRIOR TO SAE: 24/DEC/2012
     Route: 042
  5. PACLITAXEL [Suspect]
     Indication: BREAST CANCER
     Dosage: DATE OF LAST DOSE PRIOR TO SAE: 24/OCT/2012
     Route: 042
     Dates: start: 20121002
  6. ZYRTEC [Concomitant]
     Indication: PREMEDICATION
     Route: 065
     Dates: start: 20121001
  7. DEXAMETHASONE [Concomitant]
     Indication: PREMEDICATION
     Route: 065
     Dates: start: 20121001
  8. CALCIUM CARBONATE [Concomitant]
     Indication: PROPHYLAXIS
     Route: 065
     Dates: start: 20121230
  9. CALCIUM CARBONATE [Concomitant]
     Route: 065
     Dates: start: 20121230
  10. DAFALGAN [Concomitant]
     Indication: PROPHYLAXIS
     Route: 065
  11. D-CURE [Concomitant]
     Indication: PROPHYLAXIS
     Dosage: TOTAL DAILY DOSE: 1 UNIT PER MONTH
     Route: 065
  12. DEANXIT [Concomitant]
     Indication: NEURALGIA
     Route: 065
  13. LYRICA [Concomitant]
     Indication: NEURALGIA
  14. ZOLPIDEM [Concomitant]
     Indication: PROPHYLAXIS
  15. ZOLPIDEM [Concomitant]
     Indication: SLEEP DISORDER
  16. LEVOCETIRIZINE [Concomitant]
     Indication: PROPHYLAXIS
  17. LEVOCETIRIZINE [Concomitant]
     Indication: PRURITUS
  18. AMOXICILLINE [Concomitant]
     Route: 065
     Dates: start: 20121209, end: 20121213
  19. AVELOX [Concomitant]
     Route: 065
     Dates: start: 20121214, end: 20121216
  20. AVELOX [Concomitant]
     Route: 065
     Dates: start: 20121226, end: 20121230
  21. INNOHEP [Concomitant]
     Route: 065
     Dates: start: 20121129
  22. DENOSUMAB [Concomitant]
     Indication: PROPHYLAXIS
     Route: 065
     Dates: start: 20120816
  23. DENOSUMAB [Concomitant]
     Indication: METASTASES TO BONE
  24. BEFACT FORTE [Concomitant]
  25. VANCOCIN [Concomitant]
     Route: 065
     Dates: start: 20130207
  26. STILNOCT [Concomitant]
  27. ZITROMAX [Concomitant]
     Route: 065
     Dates: start: 20121230, end: 20130104
  28. IMODIUM [Concomitant]
     Route: 065
     Dates: start: 20121230, end: 20121230

REACTIONS (2)
  - Pneumonia [Recovered/Resolved]
  - Pyrexia [Recovered/Resolved]
